FAERS Safety Report 13958039 (Version 1)
Quarter: 2017Q3

REPORT INFORMATION
  Report Type: Spontaneous
  Country: US (occurrence: US)
  Receive Date: 20170911
  Receipt Date: 20170911
  Transmission Date: 20171128
  Serious: Yes (Hospitalization, Other)
  Sender: FDA-Public Use
  Company Number: US-ROCHE-1044837

PATIENT
  Sex: Female

DRUGS (1)
  1. RITUXAN [Suspect]
     Active Substance: RITUXIMAB
     Indication: GRANULOMATOSIS WITH POLYANGIITIS
     Dosage: FOUR INFUSIONS RECEIVED IN 2011 (JULY 14, 21, 28 AND AUG 4).
     Route: 042

REACTIONS (6)
  - Epistaxis [Unknown]
  - Granulomatosis with polyangiitis [Recovering/Resolving]
  - Bronchitis bacterial [Recovering/Resolving]
  - Dyspnoea [Unknown]
  - Sinusitis [Unknown]
  - Infection [Unknown]

NARRATIVE: CASE EVENT DATE: 20120229
